FAERS Safety Report 5841146-0 (Version None)
Quarter: 2008Q3

REPORT INFORMATION
  Report Type: 
  Country: None (occurrence: None)
  Receive Date: 20080807
  Receipt Date: 20080807
  Transmission Date: 20090109
  Serious: Yes (Hospitalization, Other)
  Sender: FDA-Public Use
  Company Number: None

PATIENT
  Age: 25 Year
  Sex: Female
  Weight: 81.6475 kg

DRUGS (1)
  1. YAZ  N/A  BAYER HEALTHCARE [Suspect]
     Indication: CONTRACEPTION
     Dosage: 1 PILL ONCE A DAY PO
     Route: 048
     Dates: start: 20071121, end: 20080724

REACTIONS (16)
  - ACTIVITIES OF DAILY LIVING IMPAIRED [None]
  - ANXIETY [None]
  - CRYING [None]
  - DIARRHOEA [None]
  - DIZZINESS [None]
  - FATIGUE [None]
  - FEAR [None]
  - HEADACHE [None]
  - HYPERVENTILATION [None]
  - HYPOAESTHESIA [None]
  - MENSTRUATION IRREGULAR [None]
  - MIDDLE EAR EFFUSION [None]
  - MOTION SICKNESS [None]
  - NAUSEA [None]
  - SKIN DISCOLOURATION [None]
  - VISUAL IMPAIRMENT [None]
